FAERS Safety Report 4419414-9 (Version None)
Quarter: 2004Q3

REPORT INFORMATION
  Report Type: 
  Country: None (occurrence: None)
  Receive Date: 20040809
  Receipt Date: 20040123
  Transmission Date: 20050211
  Serious: No
  Sender: FDA-Public Use
  Company Number: US-GLAXOSMITHKLINE-A0496001A

PATIENT
  Age: 42 Year
  Sex: Male

DRUGS (1)
  1. PAXIL [Suspect]
     Route: 048
     Dates: start: 20020601

REACTIONS (3)
  - DISTURBANCE IN SEXUAL AROUSAL [None]
  - EJACULATION DELAYED [None]
  - ERECTILE DYSFUNCTION [None]
